FAERS Safety Report 5361322-3 (Version None)
Quarter: 2007Q2

REPORT INFORMATION
  Report Type: 
  Country: None (occurrence: None)
  Receive Date: 20070618
  Receipt Date: 20070615
  Transmission Date: 20071010
  Serious: Yes (Other)
  Sender: FDA-Public Use
  Company Number: GB-ABBOTT-07P-167-0371629-00

PATIENT
  Age: 86 Year
  Sex: Male
  Weight: 64 kg

DRUGS (6)
  1. WARFARIN SODIUM [Suspect]
     Indication: DRUG USE FOR UNKNOWN INDICATION
  2. VERAPAMIL [Interacting]
     Indication: ATRIAL FIBRILLATION
     Dates: start: 20070504, end: 20070508
  3. PREDNISOLONE [Concomitant]
     Indication: PAPILLARY MUSCLE RUPTURE
  4. METHOTREXATE [Concomitant]
     Indication: PAPILLARY MUSCLE RUPTURE
  5. PRAVASTATIN [Concomitant]
     Indication: CORONARY ARTERY DISEASE
  6. ACETYLSALICYLIC ACID SRT [Concomitant]
     Indication: TRANSIENT ISCHAEMIC ATTACK

REACTIONS (3)
  - ASTHENIA [None]
  - DRUG INTERACTION POTENTIATION [None]
  - INTERNATIONAL NORMALISED RATIO INCREASED [None]
